FAERS Safety Report 15283953 (Version 1)
Quarter: 2018Q3

REPORT INFORMATION
  Report Type: Spontaneous
  Country: CA (occurrence: CA)
  Receive Date: 20180816
  Receipt Date: 20180816
  Transmission Date: 20181010
  Serious: Yes (Other)
  Sender: FDA-Public Use
  Company Number: CA-PFIZER INC-2018325102

PATIENT

DRUGS (2)
  1. HYDROCORTISONE. [Suspect]
     Active Substance: HYDROCORTISONE
     Indication: BRONCHOPULMONARY DYSPLASIA
     Dosage: UNK
  2. APO?DEXAMETHASONE [Suspect]
     Active Substance: DEXAMETHASONE
     Indication: BRONCHOPULMONARY DYSPLASIA
     Dosage: UNK

REACTIONS (2)
  - Adrenocortical insufficiency acute [Recovered/Resolved]
  - Product use in unapproved indication [Unknown]
